FAERS Safety Report 5868984-2 (Version None)
Quarter: 2008Q3

REPORT INFORMATION
  Report Type: 
  Country: None (occurrence: None)
  Receive Date: 20080902
  Receipt Date: 20080902
  Transmission Date: 20090109
  Serious: No
  Sender: FDA-Public Use
  Company Number: None

PATIENT
  Age: 68 Year
  Sex: Male
  Weight: 98.88 kg

DRUGS (1)
  1. LISINOPRIL [Suspect]
     Indication: CORONARY ARTERY DISEASE
     Dosage: 20 MG EVERY DAY PO
     Route: 048
     Dates: start: 20050608, end: 20080824

REACTIONS (1)
  - HYPERKALAEMIA [None]
